FAERS Safety Report 7789365-0 (Version None)
Quarter: 2011Q3

REPORT INFORMATION
  Report Type: 
  Country: None (occurrence: None)
  Receive Date: 20110930
  Receipt Date: 20110926
  Transmission Date: 20111222
  Serious: Yes (Other)
  Sender: FDA-Public Use
  Company Number: PH-GLAXOSMITHKLINE-B0750882A

PATIENT
  Age: 3 Year
  Sex: Female

DRUGS (1)
  1. AVAMYS [Suspect]
     Indication: PRODUCT USED FOR UNKNOWN INDICATION

REACTIONS (1)
  - MOLLUSCUM CONTAGIOSUM [None]
